FAERS Safety Report 4506655-5 (Version None)
Quarter: 2004Q4

REPORT INFORMATION
  Report Type: 
  Country: None (occurrence: None)
  Receive Date: 20041122
  Receipt Date: 20041102
  Transmission Date: 20050328
  Serious: Yes (Life-Threatening, Hospitalization, Other)
  Sender: FDA-Public Use
  Company Number: US-MERCK-0411USA00335

PATIENT
  Age: 56 Year
  Sex: Female
  Weight: 55 kg

DRUGS (1)
  1. ZETIA [Suspect]
     Indication: HYPERLIPIDAEMIA
     Route: 048
     Dates: start: 20040722, end: 20041011

REACTIONS (3)
  - BLOOD CHOLESTEROL INCREASED [None]
  - HAEMORRHAGE INTRACRANIAL [None]
  - LOW DENSITY LIPOPROTEIN INCREASED [None]
